FAERS Safety Report 8805833 (Version 1)
Quarter: 2012Q4

REPORT INFORMATION
  Report Type: Spontaneous
  Country: US (occurrence: None)
  Receive Date: 20120919
  Receipt Date: 20120919
  Transmission Date: 20130627
  Serious: Yes (Other)
  Sender: FDA-Public Use
  Company Number: None

PATIENT
  Age: 34 Year
  Sex: Female
  Weight: 52.16 kg

DRUGS (1)
  1. REBIF [Suspect]
     Indication: MULTIPLE SCLEROSIS RELAPSE PROPHYLAXIS
     Route: 058
     Dates: start: 20120917, end: 20120917

REACTIONS (9)
  - Insomnia [None]
  - Mania [None]
  - Irritability [None]
  - Tachyphrenia [None]
  - Pruritus generalised [None]
  - Eye disorder [None]
  - Foreign body sensation in eyes [None]
  - Eye pruritus [None]
  - Heart rate increased [None]
